FAERS Safety Report 8623892-9 (Version None)
Quarter: 2012Q3

REPORT INFORMATION
  Report Type: 
  Country: None (occurrence: None)
  Receive Date: 20120827
  Receipt Date: 20120820
  Transmission Date: 20120928
  Serious: Yes (Other)
  Sender: FDA-Public Use
  Company Number: FR-UCBSA-063993

PATIENT
  Sex: Female

DRUGS (2)
  1. KEPPRA [Suspect]
     Indication: EPILEPSY
     Dosage: 100MG/ML
     Route: 048
  2. LAMICTAL [Concomitant]
     Indication: EPILEPSY
     Dosage: 400 MG DAILY
     Route: 048

REACTIONS (2)
  - EPILEPSY [None]
  - MATERNAL EXPOSURE DURING PREGNANCY [None]
